FAERS Safety Report 8940666 (Version 1)
Quarter: 2012Q4

REPORT INFORMATION
  Report Type: 
  Country: DE (occurrence: DE)
  Receive Date: 20121203
  Receipt Date: 20121203
  Transmission Date: 20130627
  Serious: Yes (Death)
  Sender: FDA-Public Use
  Company Number: DE-MYLANLABS-2012S1024392

PATIENT
  Age: 54 Year
  Sex: Male

DRUGS (16)
  1. QUETIAPINE [Suspect]
     Indication: PRODUCT USED FOR UNKNOWN INDICATION
  2. TAMSULOSIN [Suspect]
     Indication: PRODUCT USED FOR UNKNOWN INDICATION
  3. AMITRIPTYLINE [Suspect]
     Indication: PRODUCT USED FOR UNKNOWN INDICATION
  4. VALPROIC ACID [Suspect]
     Indication: PRODUCT USED FOR UNKNOWN INDICATION
  5. OMEPRAZOLE [Suspect]
     Indication: PRODUCT USED FOR UNKNOWN INDICATION
  6. PARACETAMOL [Suspect]
     Indication: PYREXIA
  7. FUROSEMIDE [Suspect]
     Indication: PYREXIA
  8. LACTULOSE [Suspect]
     Indication: PRODUCT USED FOR UNKNOWN INDICATION
  9. CARBAMAZEPINE [Suspect]
     Indication: EPILEPSY
  10. DIAZEPAM [Suspect]
     Indication: PRODUCT USED FOR UNKNOWN INDICATION
  11. VANCOMYCIN HCL [Suspect]
     Indication: PYREXIA
  12. TRIMETHOPRIM [Suspect]
     Indication: PRODUCT USED FOR UNKNOWN INDICATION
  13. CYCLOBENZAPRINE HCL [Suspect]
     Indication: HYPOTONIA
  14. TIAPRIDE [Suspect]
     Indication: PRODUCT USED FOR UNKNOWN INDICATION
  15. SULFADICRAMIDE [Suspect]
     Indication: INFECTION
  16. INFLUENZA VACCINE [Suspect]
     Indication: INFLUENZA IMMUNISATION

REACTIONS (1)
  - Death [Fatal]
